FAERS Safety Report 7582862-2 (Version None)
Quarter: 2011Q2

REPORT INFORMATION
  Report Type: 
  Country: None (occurrence: None)
  Receive Date: 20110627
  Receipt Date: 20110627
  Transmission Date: 20111010
  Serious: Yes (Other)
  Sender: FDA-Public Use
  Company Number: None

PATIENT
  Age: 49 Year
  Sex: Female
  Weight: 99.7913 kg

DRUGS (1)
  1. CIPROFLOXACIN [Suspect]
     Indication: EXPOSURE TO TOXIC AGENT
     Dates: start: 20080801, end: 20080805

REACTIONS (7)
  - AMNESIA [None]
  - OSTEOARTHRITIS [None]
  - DEPRESSION [None]
  - TOOTH DISORDER [None]
  - PARALYSIS [None]
  - PAIN [None]
  - ANAPHYLACTIC SHOCK [None]
